FAERS Safety Report 22220841 (Version 10)
Quarter: 2025Q1

REPORT INFORMATION
  Report Type: Report from Study
  Country: IT (occurrence: IT)
  Receive Date: 20230418
  Receipt Date: 20250331
  Transmission Date: 20250408
  Serious: Yes (Death, Other)
  Sender: CELLTRION
  Company Number: IT-CELLTRION INC.-2023IT007647

PATIENT

DRUGS (9)
  1. BEVACIZUMAB [Suspect]
     Active Substance: BEVACIZUMAB
     Indication: Hepatocellular carcinoma
     Route: 065
     Dates: start: 20230228
  2. ATEZOLIZUMAB [Suspect]
     Active Substance: ATEZOLIZUMAB
     Indication: Hepatocellular carcinoma
     Route: 041
     Dates: start: 20230228
  3. CANDETENS [AMLODIPINE BESILATE;CANDESARTAN CILEXETIL] [Concomitant]
  4. FINASTERIDE;TAMSULOSIN [Concomitant]
  5. PANTOPRAZOLE [Concomitant]
     Active Substance: PANTOPRAZOLE
     Indication: Prophylaxis
     Dates: start: 20230627
  6. FONDAPARINUX [Concomitant]
     Active Substance: FONDAPARINUX
     Dates: start: 20230928
  7. AMLODIPINE\CANDESARTAN CILEXETIL [Concomitant]
     Active Substance: AMLODIPINE\CANDESARTAN CILEXETIL
     Dates: start: 20231016
  8. SORAFENIB [Concomitant]
     Active Substance: SORAFENIB
     Dates: start: 20231009, end: 20231211
  9. RINOVAGOS [Concomitant]
     Dates: start: 20231024, end: 20231124

REACTIONS (7)
  - Death [Fatal]
  - Hyperthyroidism [Recovered/Resolved]
  - Hypothyroidism [Not Recovered/Not Resolved]
  - Autoimmune thyroiditis [Not Recovered/Not Resolved]
  - Melaena [Recovered/Resolved]
  - Diarrhoea [Recovered/Resolved]
  - Intentional product use issue [Unknown]

NARRATIVE: CASE EVENT DATE: 20230328
